FAERS Safety Report 4348140-X (Version None)
Quarter: 2004Q2

REPORT INFORMATION
  Report Type: 
  Country: None (occurrence: None)
  Receive Date: 20040422
  Receipt Date: 20040406
  Transmission Date: 20050107
  Serious: Yes (Hospitalization)
  Sender: FDA-Public Use
  Company Number: DSA_24164_2004

PATIENT
  Age: 53 Year
  Sex: Female
  Weight: 64.7 kg

DRUGS (15)
  1. ATIVAN [Suspect]
     Dosage: 1 MG
     Dates: end: 20040201
  2. DILAUDID [Suspect]
     Indication: CANCER PAIN
     Dosage: 4 MG Q1HR IV
     Route: 042
     Dates: start: 20040220, end: 20040223
  3. DILAUDID [Suspect]
     Indication: CANCER PAIN
     Dosage: 2 MG IV
     Dates: start: 20040220, end: 20040223
  4. DILAUDID [Suspect]
     Indication: CANCER PAIN
     Dosage: 3 MG Q1HR IV
     Route: 042
     Dates: start: 20040224, end: 20040228
  5. DILAUDID [Suspect]
     Indication: CANCER PAIN
     Dosage: 3 MG Q1HR IV
     Route: 042
     Dates: start: 20040201, end: 20040219
  6. BUPIVACAINE [Concomitant]
  7. ACTIQ [Concomitant]
  8. DECADRON [Concomitant]
  9. COLACE [Concomitant]
  10. DULCOLAX [Concomitant]
  11. REGLAN [Concomitant]
  12. ONDANSETRON HCL [Concomitant]
  13. ZYPREXA [Concomitant]
  14. VIOXX [Concomitant]
  15. ARICEPT [Concomitant]

REACTIONS (8)
  - DEHYDRATION [None]
  - DELIRIUM [None]
  - DELUSION [None]
  - HALLUCINATION [None]
  - LIVER DISORDER [None]
  - METABOLIC DISORDER [None]
  - RESPIRATORY FAILURE [None]
  - SEDATION [None]
